FAERS Safety Report 7706687-X (Version None)
Quarter: 2011Q3

REPORT INFORMATION
  Report Type: 
  Country: None (occurrence: None)
  Receive Date: 20110824
  Receipt Date: 20110815
  Transmission Date: 20111222
  Serious: Yes (Hospitalization)
  Sender: FDA-Public Use
  Company Number: JP-JNJFOC-20110712287

PATIENT
  Sex: Female
  Weight: 73 kg

DRUGS (19)
  1. NIFEDIPINE [Concomitant]
     Indication: HYPERTENSION
  2. GOODMIN [Concomitant]
     Indication: SCHIZOPHRENIA
  3. CLONAZEPAM [Concomitant]
     Indication: SCHIZOPHRENIA
  4. INTENURSE [Concomitant]
     Route: 062
     Dates: start: 20110324
  5. PREDNISOLONE [Concomitant]
     Indication: MUSCULOSKELETAL PAIN
  6. RHEUMATREX [Concomitant]
     Indication: MUSCULOSKELETAL PAIN
  7. CELECOXIB [Concomitant]
     Indication: MUSCULOSKELETAL PAIN
  8. RIMATIL [Concomitant]
     Indication: MUSCULOSKELETAL PAIN
  9. CRESTOR [Concomitant]
     Indication: HYPERTENSION
  10. LAMISIL [Concomitant]
     Indication: HYPERTONIC BLADDER
  11. PALIPERIDONE [Suspect]
     Indication: SCHIZOPHRENIA
     Route: 030
     Dates: start: 20110307, end: 20110307
  12. FOLIC ACID [Concomitant]
     Indication: MUSCULOSKELETAL PAIN
  13. PROMETHAZINE HYDROCHLORIDE [Concomitant]
     Indication: SCHIZOPHRENIA
  14. STANZOME [Concomitant]
     Indication: MUSCULOSKELETAL PAIN
  15. TASMOLIN [Concomitant]
  16. BUP-4 [Concomitant]
     Indication: HYPERTONIC BLADDER
  17. PALIPERIDONE [Suspect]
     Route: 030
     Dates: start: 20110314, end: 20110314
  18. PALIPERIDONE [Suspect]
     Route: 030
     Dates: start: 20110411, end: 20110704
  19. GLYCERINE [Concomitant]
     Indication: CONSTIPATION

REACTIONS (2)
  - FEMUR FRACTURE [None]
  - SCHIZOPHRENIA [None]
